FAERS Safety Report 4910027-9 (Version None)
Quarter: 2006Q1

REPORT INFORMATION
  Report Type: 
  Country: None (occurrence: None)
  Receive Date: 20060208
  Receipt Date: 20060127
  Transmission Date: 20060701
  Serious: Yes (Hospitalization)
  Sender: FDA-Public Use
  Company Number: US016758

PATIENT
  Age: 65 Year
  Sex: Female

DRUGS (11)
  1. ACTIQ [Suspect]
     Indication: CANCER PAIN
     Dosage: 200 UG TID BUCCAL
     Route: 002
     Dates: start: 20051227, end: 20051227
  2. MORPHINE [Suspect]
     Dosage: 30 MG QD INTRAVENOUS
     Route: 042
     Dates: end: 20051226
  3. MORPHINE [Suspect]
     Dosage: 51 MG QD INTRAVENOUS
     Route: 042
     Dates: start: 20051227, end: 20051227
  4. NIFEDIPINE [Concomitant]
  5. TEMESTA [Concomitant]
  6. TAVANIC [Concomitant]
  7. URSOLVAN-200 [Concomitant]
  8. AMOXICILLIN [Concomitant]
  9. DIFFU K [Concomitant]
  10. PARIET [Concomitant]
  11. MOTILIUM [Concomitant]

REACTIONS (8)
  - COMA [None]
  - CONVULSION [None]
  - DRUG TOXICITY [None]
  - HEART RATE INCREASED [None]
  - HYPERTONIA [None]
  - MIOSIS [None]
  - MUSCLE RIGIDITY [None]
  - RESPIRATORY FAILURE [None]
